FAERS Safety Report 8791210 (Version 1)
Quarter: 2012Q4

REPORT INFORMATION
  Report Type: Spontaneous
  Country: US (occurrence: None)
  Receive Date: 20120913
  Receipt Date: 20120913
  Transmission Date: 20130627
  Serious: Yes (Other)
  Sender: FDA-Public Use
  Company Number: None

PATIENT
  Sex: Male
  Weight: 88.45 kg

DRUGS (1)
  1. ETODOLAC [Suspect]

REACTIONS (5)
  - Chest pain [None]
  - Neck pain [None]
  - Nausea [None]
  - Asthenia [None]
  - Malaise [None]
